FAERS Safety Report 21349764 (Version 3)
Quarter: 2023Q1

REPORT INFORMATION
  Report Type: Spontaneous
  Country: ES (occurrence: ES)
  Receive Date: 20220919
  Receipt Date: 20230316
  Transmission Date: 20230418
  Serious: Yes (Disabling, Other)
  Sender: FDA-Public Use
  Company Number: None

PATIENT
  Age: 62 Year
  Sex: Male
  Weight: 88 kg

DRUGS (1)
  1. PRAMIPEXOLE DIHYDROCHLORIDE [Suspect]
     Active Substance: PRAMIPEXOLE DIHYDROCHLORIDE
     Indication: Restless legs syndrome
     Dosage: 1 DOSAGE FORM, QD (1 COMPRIMIDO AL D?A POR LA NOCHE )
     Route: 048
     Dates: start: 2020, end: 20220829

REACTIONS (6)
  - Intestinal obstruction [Not Recovered/Not Resolved]
  - Product residue present [Not Recovered/Not Resolved]
  - Product residue present [Not Recovered/Not Resolved]
  - Poor quality product administered [Unknown]
  - Product residue present [Not Recovered/Not Resolved]
  - Constipation [Not Recovered/Not Resolved]

NARRATIVE: CASE EVENT DATE: 20220820
